FAERS Safety Report 15677055 (Version 2)
Quarter: 2019Q2

REPORT INFORMATION
  Report Type: Spontaneous
  Country: US (occurrence: US)
  Receive Date: 20181130
  Receipt Date: 20190419
  Transmission Date: 20190711
  Serious: Yes (Other)
  Sender: FDA-Public Use
  Company Number: US-PFIZER INC-2018487501

PATIENT
  Age: 75 Year
  Sex: Female

DRUGS (1)
  1. XELJANZ XR [Suspect]
     Active Substance: TOFACITINIB CITRATE
     Dosage: 11 MG, UNK

REACTIONS (9)
  - Weight decreased [Unknown]
  - Haemorrhagic diathesis [Unknown]
  - Abdominal pain upper [Unknown]
  - Pelvic fracture [Unknown]
  - Eating disorder [Unknown]
  - Musculoskeletal chest pain [Unknown]
  - Fall [Unknown]
  - Increased tendency to bruise [Unknown]
  - Pain in extremity [Unknown]

NARRATIVE: CASE EVENT DATE: 2018
